FAERS Safety Report 9796501 (Version 1)
Quarter: 2014Q1

REPORT INFORMATION
  Report Type: Report from Study
  Country: IN (occurrence: IN)
  Receive Date: 20140103
  Receipt Date: 20140103
  Transmission Date: 20141002
  Serious: Yes (Death)
  Sender: FDA-Public Use
  Company Number: IN-GLAXOSMITHKLINE-B0957326A

PATIENT
  Age: 65 Year
  Sex: Male

DRUGS (1)
  1. CARZEC [Suspect]
     Indication: HYPERTENSION
     Dosage: 3.125MG TWICE PER DAY
     Route: 065

REACTIONS (2)
  - Death [Fatal]
  - Surgery [Unknown]
